FAERS Safety Report 5959886-1 (Version None)
Quarter: 2008Q4

REPORT INFORMATION
  Report Type: 
  Country: None (occurrence: None)
  Receive Date: 20081119
  Receipt Date: 20081119
  Transmission Date: 20090506
  Serious: Yes (Life-Threatening)
  Sender: FDA-Public Use
  Company Number: None

PATIENT
  Sex: Male
  Weight: 80.2 kg

DRUGS (9)
  1. GENTAMICIN [Suspect]
     Indication: ENDOCARDITIS STAPHYLOCOCCAL
     Dosage: 70 MG IV Q12
     Route: 042
  2. HEPARIN [Concomitant]
  3. ZANTAC [Concomitant]
  4. ADAD [Concomitant]
  5. CEFEPIME [Concomitant]
  6. VANCOMYCIN [Concomitant]
  7. HYDRALAZINE HCL [Concomitant]
  8. ESARTAN [Concomitant]
  9. EIFAMPIN [Concomitant]

REACTIONS (1)
  - BLOOD CREATININE INCREASED [None]
